FAERS Safety Report 4593877-0 (Version None)
Quarter: 2005Q1

REPORT INFORMATION
  Report Type: 
  Country: None (occurrence: None)
  Receive Date: 20050217
  Receipt Date: 20050207
  Transmission Date: 20050727
  Serious: Yes (Hospitalization)
  Sender: FDA-Public Use
  Company Number: E2005-00479

PATIENT
  Age: 23 Year
  Sex: Male

DRUGS (1)
  1. TUBERTEST    (TUBERCULIN PPD ) [Suspect]
     Indication: TUBERCULIN TEST
     Dosage: 1.0 DF I.D.3.
     Route: 026
     Dates: start: 20040805

REACTIONS (3)
  - DYSAESTHESIA [None]
  - INJECTION SITE PAIN [None]
  - LYMPHADENITIS [None]
